FAERS Safety Report 14336729 (Version 2)
Quarter: 2018Q1

REPORT INFORMATION
  Report Type: Spontaneous
  Country: JP (occurrence: JP)
  Receive Date: 20171229
  Receipt Date: 20180201
  Transmission Date: 20180509
  Serious: Yes (Other)
  Sender: FDA-Public Use
  Company Number: JP-GLAXOSMITHKLINE-JP2017JPN199537

PATIENT
  Age: 95 Year
  Sex: Female
  Weight: 46 kg

DRUGS (2)
  1. RELVAR ELLIPTA [Suspect]
     Active Substance: FLUTICASONE FUROATE\VILANTEROL TRIFENATATE
     Dosage: 100 ?G, UNK
     Route: 055
  2. RIVASTACH [Suspect]
     Active Substance: RIVASTIGMINE
     Dosage: 4.5 MG, 1D
     Route: 050
     Dates: start: 20170427

REACTIONS (1)
  - Bradycardia [Recovered/Resolved]

NARRATIVE: CASE EVENT DATE: 20171225
